FAERS Safety Report 19667507 (Version 2)
Quarter: 2021Q3

REPORT INFORMATION
  Report Type: Spontaneous
  Country: CA (occurrence: CA)
  Receive Date: 20210806
  Receipt Date: 20210813
  Transmission Date: 20211014
  Serious: Yes (Other)
  Sender: FDA-Public Use
  Company Number: CA-VELOXIS PHARMACEUTICALS-2021VELCA-000556

PATIENT
  Age: 72 Year
  Sex: Male

DRUGS (4)
  1. ENVARSUS PA [Suspect]
     Active Substance: TACROLIMUS
     Dosage: 12 MILLIGRAM, QD (CURRENTLY AT POD #150)
     Route: 065
  2. ENVARSUS PA [Suspect]
     Active Substance: TACROLIMUS
     Indication: LIVER TRANSPLANT
     Dosage: 4 MILLIGRAM, QD (INITIATED ON POD #84)
     Route: 065
  3. ENVARSUS PA [Suspect]
     Active Substance: TACROLIMUS
     Dosage: DOSAGE WAS INCREASED
     Route: 065
  4. SIROLIMUS. [Suspect]
     Active Substance: SIROLIMUS
     Indication: LIVER TRANSPLANT
     Dosage: ADDED ON POD #70
     Route: 065

REACTIONS (2)
  - Therapeutic response decreased [Recovered/Resolved]
  - Transplant rejection [Recovered/Resolved]
